FAERS Safety Report 13394830 (Version 1)
Quarter: 2017Q2

REPORT INFORMATION
  Report Type: Spontaneous
  Country: US (occurrence: US)
  Receive Date: 20170403
  Receipt Date: 20170403
  Transmission Date: 20170830
  Serious: No
  Sender: FDA-Public Use
  Company Number: US-AMGEN-USASP2017045909

PATIENT
  Age: 56 Year
  Sex: Female

DRUGS (2)
  1. ENBREL [Suspect]
     Active Substance: ETANERCEPT
     Indication: RHEUMATOID ARTHRITIS
     Dosage: 50 MG, QWK
     Route: 058
     Dates: start: 2007, end: 20170209
  2. KRILL OIL [Concomitant]
     Active Substance: DIETARY SUPPLEMENT
     Dosage: UNK

REACTIONS (5)
  - Mycotic allergy [Recovered/Resolved]
  - Allergy to plants [Recovered/Resolved]
  - Cockroach allergy [Recovered/Resolved]
  - Food allergy [Recovered/Resolved]
  - Mite allergy [Recovered/Resolved]

NARRATIVE: CASE EVENT DATE: 2017
